FAERS Safety Report 5444894-X (Version None)
Quarter: 2007Q3

REPORT INFORMATION
  Report Type: 
  Country: None (occurrence: None)
  Receive Date: 20070906
  Receipt Date: 20070831
  Transmission Date: 20080115
  Serious: Yes (Hospitalization)
  Sender: FDA-Public Use
  Company Number: A0661443A

PATIENT
  Age: 64 Year
  Sex: Female

DRUGS (11)
  1. ADVAIR DISKUS 100/50 [Suspect]
     Indication: ASTHMA
     Dosage: 1PUFF TWICE PER DAY
     Route: 055
     Dates: start: 20070101
  2. AZMACORT [Concomitant]
  3. ADDERALL XR [Concomitant]
  4. DILAUDID [Concomitant]
  5. FLEXERIL [Concomitant]
  6. HYDROCHLOROTHIAZIDE [Concomitant]
  7. UNSPECIFIED MEDICATION [Concomitant]
  8. SYNTHROID [Concomitant]
  9. SINGULAIR [Concomitant]
  10. TRAMADOL HCL [Concomitant]
  11. VITAMIN [Concomitant]

REACTIONS (7)
  - ASTHMA [None]
  - COUGH [None]
  - DYSPNOEA [None]
  - FLUID RETENTION [None]
  - OXYGEN SATURATION DECREASED [None]
  - PHARMACEUTICAL PRODUCT COMPLAINT [None]
  - PNEUMONIA [None]
